FAERS Safety Report 6684599-0 (Version None)
Quarter: 2010Q2

REPORT INFORMATION
  Report Type: 
  Country: None (occurrence: None)
  Receive Date: 20100416
  Receipt Date: 20100406
  Transmission Date: 20101027
  Serious: Yes (Hospitalization, Other)
  Sender: FDA-Public Use
  Company Number: US-PFIZER INC-2002058523

PATIENT
  Sex: Female
  Weight: 58.05 kg

DRUGS (10)
  1. ZOLOFT [Interacting]
     Indication: DEPRESSION
     Dosage: 25 MG, 1X/DAY
     Route: 048
     Dates: start: 19980901, end: 20090801
  2. ZOLOFT [Interacting]
     Indication: ANXIETY
     Dosage: 50 MG, UNK
  3. ZOLOFT [Interacting]
     Indication: PANIC ATTACK
  4. ZOLOFT [Interacting]
     Indication: IRRITABLE BOWEL SYNDROME
  5. SERTRALINE HCL [Suspect]
     Indication: DEPRESSION
     Dosage: 50 MG, 2X/DAY
  6. SERTRALINE HCL [Suspect]
     Indication: ANXIETY
     Dosage: 100 MG, UNK
     Route: 048
     Dates: start: 20090904, end: 20090904
  7. SERTRALINE HCL [Suspect]
     Indication: PANIC ATTACK
     Dosage: TWO 50 MG TABS ONCE A DAY
     Dates: start: 20090801
  8. SERTRALINE HCL [Suspect]
     Indication: IRRITABLE BOWEL SYNDROME
  9. SYNTHROID [Suspect]
     Indication: HYPOTHYROIDISM
     Dosage: DAILY
     Route: 048
     Dates: start: 20010315
  10. CYPROHEPTADINE HCL [Interacting]
     Route: 065

REACTIONS (27)
  - ACNE [None]
  - AMENORRHOEA [None]
  - ANXIETY [None]
  - CONSTIPATION [None]
  - DECREASED APPETITE [None]
  - DEPRESSION [None]
  - DIARRHOEA [None]
  - DISTURBANCE IN ATTENTION [None]
  - DRUG INEFFECTIVE [None]
  - DRUG INTERACTION [None]
  - DRUG LEVEL INCREASED [None]
  - DRY MOUTH [None]
  - GASTROINTESTINAL INFECTION [None]
  - HAEMORRHOIDS [None]
  - HYPOTHYROIDISM [None]
  - INSOMNIA [None]
  - IRRITABLE BOWEL SYNDROME [None]
  - MALAISE [None]
  - MENSTRUATION IRREGULAR [None]
  - METABOLIC DISORDER [None]
  - NERVOUSNESS [None]
  - PRURITUS [None]
  - TABLET ISSUE [None]
  - TONGUE GEOGRAPHIC [None]
  - URTICARIA [None]
  - WEIGHT DECREASED [None]
  - WEIGHT INCREASED [None]
